FAERS Safety Report 6202560-7 (Version None)
Quarter: 2009Q2

REPORT INFORMATION
  Report Type: 
  Country: None (occurrence: None)
  Receive Date: 20090521
  Receipt Date: 20090521
  Transmission Date: 20091009
  Serious: No
  Sender: FDA-Public Use
  Company Number: None

PATIENT
  Age: 73 Year
  Sex: Male
  Weight: 65.7716 kg

DRUGS (1)
  1. NAMENDA [Suspect]
     Indication: DEMENTIA
     Dosage: 10 MG. BID PO
     Route: 048
     Dates: start: 20080118, end: 20090501

REACTIONS (9)
  - DECREASED APPETITE [None]
  - DRY SKIN [None]
  - INFLAMMATION [None]
  - PRURITUS [None]
  - RASH PAPULAR [None]
  - RENAL FAILURE CHRONIC [None]
  - SKIN DISCOLOURATION [None]
  - SKIN EXFOLIATION [None]
  - WEIGHT DECREASED [None]
